FAERS Safety Report 11435145 (Version 1)
Quarter: 2015Q3

REPORT INFORMATION
  Report Type: Spontaneous
  Country: US (occurrence: US)
  Receive Date: 20150831
  Receipt Date: 20150831
  Transmission Date: 20151125
  Serious: Yes (Death, Other)
  Sender: FDA-Public Use
  Company Number: US-TEVA-589375USA

PATIENT
  Age: 75 Year
  Sex: Male

DRUGS (4)
  1. FLUOROURACIL. [Suspect]
     Active Substance: FLUOROURACIL
     Indication: GASTRIC CANCER
     Dosage: 800 MG/M2 CONTINUOUS INFUSION OVER 24 H DAILY ON DAYS 1 AND 2
     Route: 041
  2. FOLINIC ACID [Concomitant]
     Active Substance: LEUCOVORIN
     Indication: GASTRIC CANCER
     Dosage: 400 MG/M2 ON DAY 1
     Route: 042
  3. OXALIPLATIN. [Concomitant]
     Active Substance: OXALIPLATIN
     Indication: GASTRIC CANCER
     Dosage: 85 MG/M2 ON DAY 1
     Route: 042
  4. FLUOROURACIL. [Suspect]
     Active Substance: FLUOROURACIL
     Indication: GASTRIC CANCER
     Dosage: 400 MG/M2 IV PUSH ON DAY 1
     Route: 040

REACTIONS (3)
  - Gastrointestinal perforation [Unknown]
  - Death [Fatal]
  - Cardiac arrest [Recovering/Resolving]
